FAERS Safety Report 4620037-7 (Version None)
Quarter: 2005Q1

REPORT INFORMATION
  Report Type: 
  Country: None (occurrence: None)
  Receive Date: 20050324
  Receipt Date: 20050312
  Transmission Date: 20050727
  Serious: Yes (Hospitalization)
  Sender: FDA-Public Use
  Company Number: 2005043596

PATIENT
  Age: 59 Year
  Sex: Male
  Weight: 75.7507 kg

DRUGS (1)
  1. NICORETTE [Suspect]
     Indication: SMOKING CESSATION THERAPY
     Dosage: 1 CARTRIDGE ONCE, INHALATION
     Route: 055
     Dates: start: 20050306, end: 20050306

REACTIONS (1)
  - ANGINA PECTORIS [None]
